FAERS Safety Report 16702811 (Version 1)
Quarter: 2019Q3

REPORT INFORMATION
  Report Type: Report from Study
  Country: CA (occurrence: CA)
  Receive Date: 20190814
  Receipt Date: 20190814
  Transmission Date: 20191004
  Serious: Yes (Other)
  Sender: FDA-Public Use
  Company Number: CA-EMD SERONO-E2B_90049052

PATIENT
  Age: 41 Year
  Sex: Female

DRUGS (3)
  1. MORPHINE [Concomitant]
     Active Substance: MORPHINE
     Indication: NEURALGIA
  2. MAVENCLAD [Suspect]
     Active Substance: CLADRIBINE
     Indication: MULTIPLE SCLEROSIS
     Dosage: FIRST YEAR FIRST WEEK THERAPY: 100 MG PER WEEK (2 TABLETS DAILY)
     Route: 048
     Dates: start: 20180623
  3. MAVENCLAD [Suspect]
     Active Substance: CLADRIBINE
     Dosage: FIRST YEAR SECOND WEEK THERAPY (2 TABLETS ONCE DAILY)
     Route: 048
     Dates: start: 201807

REACTIONS (15)
  - Peripheral swelling [Unknown]
  - Multiple sclerosis relapse [Recovering/Resolving]
  - Abdominal mass [Unknown]
  - Hydrosalpinx [Not Recovered/Not Resolved]
  - Fatigue [Not Recovered/Not Resolved]
  - Somnolence [Unknown]
  - Paraesthesia [Not Recovered/Not Resolved]
  - Pruritus [Not Recovered/Not Resolved]
  - Feeling hot [Not Recovered/Not Resolved]
  - Dizziness [Not Recovered/Not Resolved]
  - Faeces soft [Unknown]
  - Feeling cold [Unknown]
  - Memory impairment [Unknown]
  - Ovarian cyst [Not Recovered/Not Resolved]
  - Back pain [Unknown]

NARRATIVE: CASE EVENT DATE: 201806
